FAERS Safety Report 7285895-9 (Version None)
Quarter: 2011Q1

REPORT INFORMATION
  Report Type: 
  Country: None (occurrence: None)
  Receive Date: 20110210
  Receipt Date: 20110201
  Transmission Date: 20110831
  Serious: Yes (Hospitalization, Other)
  Sender: FDA-Public Use
  Company Number: US-PFIZER INC-2011029106

PATIENT
  Age: 79 Year
  Sex: Male

DRUGS (4)
  1. METRONIDAZOLE [Suspect]
     Dosage: 500 MG, 3X/DAY
     Route: 042
  2. CIPROFLOXACIN [Suspect]
     Indication: DIVERTICULITIS
  3. PIPERACILLIN AND TAZOBACTAM [Concomitant]
     Indication: DIVERTICULITIS
     Dosage: 4.5 MG, 2X/DAY
     Route: 042
  4. GLIMEPIRIDE [Suspect]
     Indication: TYPE 2 DIABETES MELLITUS
     Dosage: 1 MG, 1X/DAY

REACTIONS (4)
  - HYPOTENSION [None]
  - HYPOGLYCAEMIA [None]
  - RENAL FAILURE ACUTE [None]
  - DRUG INTERACTION [None]
